FAERS Safety Report 17488204 (Version 1)
Quarter: 2020Q1

REPORT INFORMATION
  Report Type: Spontaneous
  Country: US (occurrence: US)
  Receive Date: 20200302
  Receipt Date: 20200302
  Transmission Date: 20200409
  Serious: Yes (Hospitalization)
  Sender: FDA-Public Use
  Company Number: None

PATIENT
  Age: 76 Year
  Sex: Female

DRUGS (2)
  1. REPATHA [Suspect]
     Active Substance: EVOLOCUMAB
     Indication: HYPERLIPIDAEMIA
     Dosage: ?          OTHER FREQUENCY:BIWEEKLY;?
     Route: 058
     Dates: start: 20190109
  2. PROLIA [Concomitant]
     Active Substance: DENOSUMAB

REACTIONS (2)
  - Influenza [None]
  - Therapy cessation [None]
